FAERS Safety Report 6153152-X (Version None)
Quarter: 2009Q2

REPORT INFORMATION
  Report Type: 
  Country: None (occurrence: None)
  Receive Date: 20090413
  Receipt Date: 20090331
  Transmission Date: 20091009
  Serious: Yes (Hospitalization, Other)
  Sender: FDA-Public Use
  Company Number: US-ELI_LILLY_AND_COMPANY-US200811003092

PATIENT
  Sex: Female

DRUGS (1)
  1. FORTEO [Suspect]
     Indication: OSTEOPOROSIS
     Dosage: UNK, UNK
     Dates: start: 20080101, end: 20080901

REACTIONS (17)
  - BACK INJURY [None]
  - BLINDNESS [None]
  - CONTUSION [None]
  - DIZZINESS [None]
  - EXCORIATION [None]
  - FALL [None]
  - FATIGUE [None]
  - FEELING ABNORMAL [None]
  - HEAD INJURY [None]
  - HIP FRACTURE [None]
  - HYPOTENSION [None]
  - JOINT INJURY [None]
  - LIMB INJURY [None]
  - OEDEMA PERIPHERAL [None]
  - PAIN [None]
  - SLEEP DISORDER [None]
  - SWELLING FACE [None]
